FAERS Safety Report 20394343 (Version 1)
Quarter: 2022Q1

REPORT INFORMATION
  Report Type: Spontaneous
  Country: DE (occurrence: DE)
  Receive Date: 20220129
  Receipt Date: 20220129
  Transmission Date: 20220423
  Serious: Yes (Hospitalization)
  Sender: FDA-Public Use
  Company Number: None

PATIENT
  Age: 61 Year
  Sex: Male

DRUGS (7)
  1. FLUOROURACIL [Suspect]
     Active Substance: FLUOROURACIL
     Indication: Product used for unknown indication
     Dosage: ACCORDING TO SCHEME
  2. PREDNISOLONE [Suspect]
     Active Substance: PREDNISOLONE
     Indication: Product used for unknown indication
     Dosage: 50MG, 2-0-0-0, TABLETS
     Route: 048
  3. NIVOLUMAB [Suspect]
     Active Substance: NIVOLUMAB
     Indication: Product used for unknown indication
     Dosage: ACCORDING TO SCHEME
  4. IPILIMUMAB [Suspect]
     Active Substance: IPILIMUMAB
     Indication: Product used for unknown indication
     Dosage: ACCORDING TO SCHEME
  5. DARBEPOETIN ALFA [Concomitant]
     Active Substance: DARBEPOETIN ALFA
     Dosage: 150 MICROGM, AS NEEDED, PRE-FILLED SYRINGES
     Route: 058
  6. LEUCOVORIN [Concomitant]
     Active Substance: LEUCOVORIN
     Dosage: ACCORDING TO SCHEME
  7. CHOLECALCIFEROL [Concomitant]
     Active Substance: CHOLECALCIFEROL
     Dosage: 20000 IU, ACCORDING TO THE SCHEME, CAPSULES
     Route: 048

REACTIONS (3)
  - General physical health deterioration [Unknown]
  - Muscular weakness [Unknown]
  - Fatigue [Unknown]
